FAERS Safety Report 13581379 (Version 1)
Quarter: 2017Q2

REPORT INFORMATION
  Report Type: Spontaneous
  Country: US (occurrence: US)
  Receive Date: 20170525
  Receipt Date: 20170525
  Transmission Date: 20170830
  Serious: No
  Sender: FDA-Public Use
  Company Number: US-GLAXOSMITHKLINE-US2017073229

PATIENT
  Age: 70 Year
  Sex: Male

DRUGS (1)
  1. NICOTINE TRANSDERMAL PATCH [Suspect]
     Active Substance: NICOTINE
     Indication: SMOKING CESSATION THERAPY
     Dosage: UNK

REACTIONS (3)
  - Application site pain [Not Recovered/Not Resolved]
  - Application site burn [Not Recovered/Not Resolved]
  - Application site discolouration [Unknown]
